FAERS Safety Report 9735415 (Version 5)
Quarter: 2014Q2

REPORT INFORMATION
  Report Type: Spontaneous
  Country: US (occurrence: US)
  Receive Date: 20131206
  Receipt Date: 20140514
  Transmission Date: 20141212
  Serious: Yes (Other)
  Sender: FDA-Public Use
  Company Number: US-ASTELLAS-2013US012648

PATIENT
  Age: 75 Year
  Sex: Male

DRUGS (10)
  1. XTANDI [Suspect]
     Indication: PROSTATE CANCER
     Route: 048
     Dates: start: 20131014, end: 201404
  2. LISINOPRIL + HIDROCLOROTIAZIDA [Suspect]
     Indication: HYPERTENSION
     Dosage: 0.5 DF, ONCE DAILY
     Route: 048
  3. TERAZOSIN HCL [Suspect]
     Indication: HYPERTENSION
     Route: 048
     Dates: end: 20140131
  4. LUPRON [Concomitant]
     Indication: PROSTATE CANCER
     Dosage: UNK, Q 6 MONTH
     Route: 065
  5. CASODEX [Concomitant]
     Indication: PROSTATE CANCER
     Route: 048
  6. CALCIUM D                          /00944201/ [Concomitant]
     Indication: PRODUCT USED FOR UNKNOWN INDICATION
     Route: 048
  7. FISH OIL [Concomitant]
     Indication: PRODUCT USED FOR UNKNOWN INDICATION
     Route: 048
  8. POTASSIUM CHLORIDE [Concomitant]
     Indication: PRODUCT USED FOR UNKNOWN INDICATION
     Dosage: 1 CAPSULE DAILY
     Route: 048
  9. ASPIRIN [Concomitant]
     Indication: PRODUCT USED FOR UNKNOWN INDICATION
     Route: 048
  10. ANTICOAGULANT [Concomitant]
     Indication: PRODUCT USED FOR UNKNOWN INDICATION
     Route: 065

REACTIONS (21)
  - Tremor [Recovered/Resolved]
  - Vision blurred [Recovered/Resolved]
  - Dizziness [Recovered/Resolved]
  - Metastases to bone [Not Recovered/Not Resolved]
  - Metastases to bone marrow [Not Recovered/Not Resolved]
  - Lymphadenopathy [Not Recovered/Not Resolved]
  - Kidney fibrosis [Not Recovered/Not Resolved]
  - Kyphoscoliosis [Not Recovered/Not Resolved]
  - Labile blood pressure [Recovered/Resolved]
  - Hypotension [Recovered/Resolved]
  - Hemiparesis [Recovered/Resolved]
  - Paraesthesia [Recovered/Resolved]
  - Hypogeusia [Unknown]
  - Cardiac murmur [Unknown]
  - Varicose vein [Not Recovered/Not Resolved]
  - Pain in extremity [Recovering/Resolving]
  - Oedema peripheral [Recovering/Resolving]
  - Malaise [Unknown]
  - Fatigue [Unknown]
  - Headache [Recovered/Resolved]
  - Adverse event [Unknown]
